FAERS Safety Report 20786506 (Version 1)
Quarter: 2022Q2

REPORT INFORMATION
  Report Type: Spontaneous
  Country: US (occurrence: None)
  Receive Date: 20220505
  Receipt Date: 20220505
  Transmission Date: 20220721
  Serious: No
  Sender: FDA-Public Use
  Company Number: US-ROCHE-2958245

PATIENT
  Sex: Female

DRUGS (4)
  1. OCREVUS [Suspect]
     Active Substance: OCRELIZUMAB
     Indication: Colitis ulcerative
     Dosage: CURRENT 300 MG/10 ML
     Route: 042
     Dates: start: 201807
  2. OCREVUS [Suspect]
     Active Substance: OCRELIZUMAB
     Indication: Gastrointestinal inflammation
  3. OCREVUS [Suspect]
     Active Substance: OCRELIZUMAB
     Indication: Multiple sclerosis
  4. OCREVUS [Suspect]
     Active Substance: OCRELIZUMAB
     Indication: Colitis

REACTIONS (1)
  - Weight decreased [Unknown]
